FAERS Safety Report 5248422-3 (Version None)
Quarter: 2007Q1

REPORT INFORMATION
  Report Type: 
  Country: None (occurrence: None)
  Receive Date: 20070222
  Receipt Date: 20070208
  Transmission Date: 20070707
  Serious: No
  Sender: FDA-Public Use
  Company Number: E3810-00645-SPO-US

PATIENT
  Age: 45 Year
  Sex: Female

DRUGS (3)
  1. ACIPHEX [Suspect]
     Indication: DYSPEPSIA
     Dosage: 20 MG, ORAL/5 YEARS AGO
  2. LIPITOR [Concomitant]
  3. HYPERTENSION MED [Concomitant]

REACTIONS (2)
  - CEREBRAL DISORDER [None]
  - HEADACHE [None]
